FAERS Safety Report 7041233-8 (Version None)
Quarter: 2010Q4

REPORT INFORMATION
  Report Type: 
  Country: None (occurrence: None)
  Receive Date: 20101013
  Receipt Date: 20101007
  Transmission Date: 20110411
  Serious: Yes (Other)
  Sender: FDA-Public Use
  Company Number: US-SANOFI-AVENTIS-2010SA061294

PATIENT
  Age: 65 Year
  Sex: Male

DRUGS (2)
  1. AMBIEN [Suspect]
     Indication: INSOMNIA
     Dosage: TOOK HALF PILL OF ZOLPIDEM
     Route: 065
     Dates: start: 20100101, end: 20100701
  2. VENLAFAXINE HCL [Concomitant]

REACTIONS (6)
  - AGITATION [None]
  - AMNESIA [None]
  - IMPAIRED DRIVING ABILITY [None]
  - ROAD TRAFFIC ACCIDENT [None]
  - SOMNAMBULISM [None]
  - WRONG TECHNIQUE IN DRUG USAGE PROCESS [None]
